FAERS Safety Report 7031014-3 (Version None)
Quarter: 2010Q4

REPORT INFORMATION
  Report Type: 
  Country: None (occurrence: None)
  Receive Date: 20101006
  Receipt Date: 20100929
  Transmission Date: 20110411
  Serious: Yes (Death)
  Sender: FDA-Public Use
  Company Number: -CUBIST-2010S1001420

PATIENT
  Sex: Male

DRUGS (11)
  1. CUBICIN [Suspect]
     Indication: SEPSIS
     Dates: start: 20100625, end: 20100625
  2. CUBICIN [Suspect]
     Dates: start: 20100701, end: 20100704
  3. CUBICIN [Suspect]
     Dates: start: 20100712
  4. VANCOMYCIN [Concomitant]
     Indication: SEPSIS
  5. GENTAMICIN [Concomitant]
     Indication: SEPSIS
  6. RIFAMPIN [Concomitant]
     Indication: PRODUCT USED FOR UNKNOWN INDICATION
  7. IMIPENEM [Concomitant]
     Indication: PRODUCT USED FOR UNKNOWN INDICATION
  8. SYNERCID [Concomitant]
     Indication: PRODUCT USED FOR UNKNOWN INDICATION
  9. CEFTRIAXONE [Concomitant]
     Indication: PRODUCT USED FOR UNKNOWN INDICATION
  10. CEFEPIME [Concomitant]
     Indication: PRODUCT USED FOR UNKNOWN INDICATION
  11. PIPERACILLIN W/TAZOBACTAM [Concomitant]
     Indication: PRODUCT USED FOR UNKNOWN INDICATION

REACTIONS (2)
  - ANTIMICROBIAL SUSCEPTIBILITY TEST RESISTANT [None]
  - DEATH [None]
